FAERS Safety Report 7807848-1 (Version None)
Quarter: 2011Q4

REPORT INFORMATION
  Report Type: 
  Country: None (occurrence: None)
  Receive Date: 20111011
  Receipt Date: 20110928
  Transmission Date: 20120403
  Serious: Yes (Hospitalization)
  Sender: FDA-Public Use
  Company Number: JP-AMGEN-JPNCT2011012825

PATIENT
  Age: 69 Year
  Sex: Female
  Weight: 56 kg

DRUGS (17)
  1. CANDESARTAN CILEXETIL [Concomitant]
     Indication: HYPERTENSION
     Dosage: UNK
     Route: 048
  2. PANITUMUMAB [Suspect]
     Dosage: 6 MG/KG, Q2WK
     Route: 041
     Dates: start: 20101208, end: 20101222
  3. TS 1 [Suspect]
     Indication: COLORECTAL CANCER
     Dosage: 100 MG, UNK
     Route: 048
     Dates: start: 20100908
  4. PYDOXAL [Concomitant]
     Dosage: UNK
     Route: 048
  5. KYTRIL [Concomitant]
     Dosage: UNK
     Route: 048
  6. GRANISETRON [Concomitant]
     Dosage: UNK
     Route: 042
  7. MUCOSTA [Concomitant]
     Indication: GASTRIC ULCER
     Dosage: UNK
     Route: 048
  8. OPALMON [Concomitant]
     Indication: LUMBAR SPINAL STENOSIS
     Dosage: UNK
     Route: 048
  9. HIRUDOID [Concomitant]
     Dosage: UNK
     Route: 062
  10. DECADRON [Concomitant]
     Dosage: UNK
     Route: 048
  11. TSUMURA HANGE-SHASHIN-TO [Concomitant]
     Dosage: UNK
     Route: 048
  12. BIOFERMIN [Concomitant]
     Dosage: UNK
     Route: 048
  13. PANITUMUMAB [Suspect]
     Indication: COLORECTAL CANCER
     Dosage: 6 MG/KG, Q2WK
     Route: 041
     Dates: start: 20100908, end: 20101103
  14. MINOCYCLINE HYDROCHLORIDE [Concomitant]
     Dosage: UNK
     Route: 048
  15. DECADRON PHOSPHATE [Concomitant]
     Dosage: UNK
     Route: 042
  16. FAMOTIDINE [Concomitant]
     Indication: GASTRIC ULCER
     Dosage: UNK
     Route: 048
  17. IRINOTECAN HCL [Suspect]
     Indication: COLORECTAL CANCER
     Dosage: 148 MG, UNK
     Route: 041
     Dates: start: 20100908

REACTIONS (3)
  - ORAL DISORDER [None]
  - SPINAL COMPRESSION FRACTURE [None]
  - DERMATITIS ACNEIFORM [None]
